FAERS Safety Report 8482559-0 (Version None)
Quarter: 2012Q3

REPORT INFORMATION
  Report Type: 
  Country: None (occurrence: None)
  Receive Date: 20120702
  Receipt Date: 20120628
  Transmission Date: 20120928
  Serious: Yes (Death, Life-Threatening)
  Sender: FDA-Public Use
  Company Number: DE-ABBOTT-12P-062-0888431-00

PATIENT
  Age: 69 Year
  Sex: Female
  Weight: 108 kg

DRUGS (1)
  1. ZEMPLAR [Suspect]
     Indication: HYPERPARATHYROIDISM SECONDARY
     Dosage: 2 X 5UG
     Dates: start: 20110314, end: 20111107

REACTIONS (1)
  - SEPSIS [None]
